FAERS Safety Report 8223227-X (Version None)
Quarter: 2012Q1

REPORT INFORMATION
  Report Type: 
  Country: None (occurrence: None)
  Receive Date: 20120321
  Receipt Date: 20120305
  Transmission Date: 20120608
  Serious: Yes (Death, Hospitalization, Other)
  Sender: FDA-Public Use
  Company Number: NL-ROCHE-631518

PATIENT

DRUGS (2)
  1. ATRASENTAN [Suspect]
     Indication: METASTATIC RENAL CELL CARCINOMA
     Route: 048
  2. ROFERON-A [Suspect]
     Indication: METASTATIC RENAL CELL CARCINOMA
     Dosage: DOSE: 9 MU
     Route: 058

REACTIONS (14)
  - PYREXIA [None]
  - PULMONARY EMBOLISM [None]
  - LEUKOPENIA [None]
  - CALCIUM METABOLISM DISORDER [None]
  - ANAEMIA [None]
  - HYPONATRAEMIA [None]
  - BLOOD BILIRUBIN INCREASED [None]
  - HYPERSENSITIVITY [None]
  - BLOOD ALKALINE PHOSPHATASE INCREASED [None]
  - NEUTROPENIA [None]
  - LYMPHOPENIA [None]
  - BLOOD POTASSIUM ABNORMAL [None]
  - NEOPLASM MALIGNANT [None]
  - GAMMA-GLUTAMYLTRANSFERASE INCREASED [None]
